FAERS Safety Report 6325976-7 (Version None)
Quarter: 2009Q3

REPORT INFORMATION
  Report Type: 
  Country: None (occurrence: None)
  Receive Date: 20090821
  Receipt Date: 20090804
  Transmission Date: 20100115
  Serious: Yes (Other)
  Sender: FDA-Public Use
  Company Number: ACO_00586_2009

PATIENT
  Age: 44 Year
  Sex: Female

DRUGS (3)
  1. TIZANIDINE HCL [Suspect]
     Indication: DRUG USE FOR UNKNOWN INDICATION
     Dosage: (DF)
  2. LOXOPROFEN (LOXOPROFEN) [Suspect]
     Indication: DRUG USE FOR UNKNOWN INDICATION
     Dosage: (DF)
  3. OVER THE COUNTER DRUG [Suspect]
     Indication: DRUG USE FOR UNKNOWN INDICATION
     Dosage: (DF)

REACTIONS (5)
  - APATHY [None]
  - HEADACHE [None]
  - INTENTIONAL DRUG MISUSE [None]
  - MAJOR DEPRESSION [None]
  - PANIC DISORDER [None]
